FAERS Safety Report 7262497-1 (Version None)
Quarter: 2011Q1

REPORT INFORMATION
  Report Type: 
  Country: None (occurrence: None)
  Receive Date: 20110130
  Receipt Date: 20101129
  Transmission Date: 20110831
  Serious: No
  Sender: FDA-Public Use
  Company Number: US-ABBOTT-10P-163-0688188-00

PATIENT
  Age: 43 Year
  Sex: Male

DRUGS (5)
  1. HUMIRA [Suspect]
     Indication: PSORIATIC ARTHROPATHY
     Dates: start: 20100601
  2. BC HEADACHE POWDER [Concomitant]
     Indication: PAIN
     Dosage: ASA 1000MG / CAFFEINE 65MG AS NEEDED
  3. LYRICA [Concomitant]
     Indication: PAIN
  4. LISINOPRIL [Concomitant]
     Indication: HYPERTENSION
  5. DARVOCET-N 100 [Concomitant]
     Indication: PAIN
     Dosage: 100/650 AS NEEDED

REACTIONS (1)
  - PAIN [None]
